FAERS Safety Report 4270459-1 (Version None)
Quarter: 2004Q1

REPORT INFORMATION
  Report Type: 
  Country: None (occurrence: None)
  Receive Date: 20040114
  Receipt Date: 20040105
  Transmission Date: 20041129
  Serious: Yes (Death, Hospitalization, Other)
  Sender: FDA-Public Use
  Company Number: FR-GLAXOSMITHKLINE-B0318779A

PATIENT
  Age: 64 Year
  Sex: Male
  Weight: 80 kg

DRUGS (7)
  1. FORTUM [Suspect]
     Indication: PNEUMONIA BACTERIAL
     Dosage: 6G PER DAY
     Route: 042
     Dates: start: 20031022, end: 20031109
  2. CYMEVAN [Suspect]
     Indication: PNEUMONIA VIRAL
     Dosage: 400MG TWICE PER DAY
     Route: 042
     Dates: start: 20031027, end: 20031105
  3. TRIFLUCAN [Suspect]
     Indication: SYSTEMIC ANTIFUNGAL TREATMENT
     Dosage: 400MG TWICE PER DAY
     Route: 048
     Dates: start: 20031030, end: 20031111
  4. AMIKACIN [Suspect]
     Indication: PNEUMONIA BACTERIAL
     Dosage: 1500MG PER DAY
     Route: 042
     Dates: start: 20031022, end: 20031107
  5. VANCOMYCIN [Suspect]
     Indication: PNEUMONIA STAPHYLOCOCCAL
     Dosage: 3G PER DAY
     Route: 042
     Dates: start: 20031022, end: 20031107
  6. VORICONAZOLE [Concomitant]
     Indication: SYSTEMIC ANTIFUNGAL TREATMENT
     Route: 065
     Dates: start: 20031101
  7. CASPOFUNGIN [Concomitant]
     Indication: SYSTEMIC ANTIFUNGAL TREATMENT
     Route: 042

REACTIONS (3)
  - BLOOD BILIRUBIN INCREASED [None]
  - JAUNDICE CHOLESTATIC [None]
  - LEUKOPENIA [None]
